FAERS Safety Report 6389434 (Version 13)
Quarter: 2013Q3

REPORT INFORMATION
  Report Type: Spontaneous
  Country: US (occurrence: US)
  Receive Date: 20070823
  Receipt Date: 20130823
  Transmission Date: 20140515
  Serious: Yes (Death, Hospitalization, Other)
  Sender: FDA-Public Use
  Company Number: PHEH2007US11345

PATIENT
  Sex: Male

DRUGS (29)
  1. ZOMETA [Suspect]
     Dosage: 4 MG
     Dates: start: 20050114, end: 200606
  2. ACTONEL [Suspect]
     Dosage: 35 MG, QW
  3. INSULIN [Concomitant]
  4. PROTONIX ^PHARMACIA^ [Concomitant]
     Dosage: 40 MG
  5. PREDNISONE [Concomitant]
     Dosage: 20 MG
  6. COLCHICINE [Concomitant]
  7. SKELAXIN [Concomitant]
     Dosage: 800 MG
  8. GABAPENTIN [Concomitant]
  9. PERCOCET [Concomitant]
     Dosage: 1 DF
  10. DARVOCET-N [Concomitant]
  11. ASPIRIN ^BAYER^ [Concomitant]
     Dosage: 81 MG
  12. VITAMINS NOS [Concomitant]
  13. PLAVIX [Concomitant]
     Dosage: 75 MG
  14. ZOCOR ^DIECKMANN^ [Concomitant]
     Dosage: 20 MG
  15. ZOLADEX [Concomitant]
  16. COMBIVENT                               /GFR/ [Concomitant]
  17. ACETYLCYSTEINE [Concomitant]
  18. XOPENEX [Concomitant]
  19. LEVAQUIN [Concomitant]
  20. SEREVENT [Concomitant]
  21. NASACORT [Concomitant]
  22. FLOVENT [Concomitant]
  23. MEDROL [Concomitant]
  24. CEFTIN [Concomitant]
  25. VALIUM [Concomitant]
  26. FLEXERIL [Concomitant]
  27. INTERFERON [Concomitant]
  28. DILAUDID [Concomitant]
  29. CASODEX [Concomitant]

REACTIONS (34)
  - Pulmonary fibrosis [Fatal]
  - Pneumonia [Fatal]
  - Haemoptysis [Fatal]
  - Lung infiltration [Fatal]
  - Dyspnoea [Fatal]
  - Cough [Fatal]
  - Sleep apnoea syndrome [Fatal]
  - Obesity [Fatal]
  - Spinal compression fracture [Unknown]
  - Back pain [Unknown]
  - Acute respiratory failure [Unknown]
  - Diabetes mellitus [Unknown]
  - Osteonecrosis of jaw [Unknown]
  - General physical health deterioration [Unknown]
  - Pain [Unknown]
  - Anxiety [Unknown]
  - Decreased interest [Unknown]
  - Disability [Unknown]
  - Tooth infection [Unknown]
  - Gastrooesophageal reflux disease [Unknown]
  - Claustrophobia [Unknown]
  - Intervertebral disc protrusion [Unknown]
  - Arthritis [Unknown]
  - Interstitial lung disease [Unknown]
  - Hypoxia [Unknown]
  - Pulmonary oedema [Unknown]
  - Intervertebral disc degeneration [Unknown]
  - Pancreatitis [Unknown]
  - Tracheobronchitis [Unknown]
  - Aortic calcification [Unknown]
  - Osteoarthritis [Unknown]
  - Ventricular dysfunction [Unknown]
  - Gait disturbance [Unknown]
  - Sciatica [Not Recovered/Not Resolved]
